FAERS Safety Report 12710161 (Version 1)
Quarter: 2016Q3

REPORT INFORMATION
  Report Type: Spontaneous
  Country: FR (occurrence: FR)
  Receive Date: 20160902
  Receipt Date: 20160902
  Transmission Date: 20161109
  Serious: Yes (Hospitalization)
  Sender: FDA-Public Use
  Company Number: FR-ASTRAZENECA-2016SE92770

PATIENT
  Age: 23751 Day
  Sex: Male

DRUGS (4)
  1. LOVENOX [Suspect]
     Active Substance: ENOXAPARIN SODIUM
     Indication: ANTICOAGULANT THERAPY
     Route: 058
     Dates: start: 20160728, end: 20160817
  2. MEROPENEM. [Suspect]
     Active Substance: MEROPENEM
     Indication: MENINGITIS
     Route: 042
     Dates: start: 20160803, end: 20160817
  3. VANCOMYCINE [Suspect]
     Active Substance: VANCOMYCIN
     Indication: MENINGITIS
     Route: 042
     Dates: start: 20160803, end: 20160817
  4. INEXIUM [Suspect]
     Active Substance: ESOMEPRAZOLE
     Route: 048
     Dates: start: 20160728, end: 20160817

REACTIONS (4)
  - Eosinophilia [Recovered/Resolved]
  - Erythema [Unknown]
  - Neutropenia [Recovered/Resolved]
  - Rash macular [Unknown]

NARRATIVE: CASE EVENT DATE: 20160812
